FAERS Safety Report 16970320 (Version 1)
Quarter: 2019Q4

REPORT INFORMATION
  Report Type: Spontaneous
  Country: US (occurrence: US)
  Receive Date: 20191029
  Receipt Date: 20191029
  Transmission Date: 20200122
  Serious: No
  Sender: FDA-Public Use
  Company Number: US-PFIZER INC-2019463424

PATIENT

DRUGS (1)
  1. PRAZOSIN HCL [Suspect]
     Active Substance: PRAZOSIN HYDROCHLORIDE
     Indication: POST-TRAUMATIC STRESS DISORDER
     Dosage: 5 MG, 1X/DAY (AT NIGHT)

REACTIONS (6)
  - Discomfort [Unknown]
  - Off label use [Unknown]
  - Product dose omission [Unknown]
  - Memory impairment [Unknown]
  - Sluggishness [Unknown]
  - Product use in unapproved indication [Unknown]

NARRATIVE: CASE EVENT DATE: 201910
